FAERS Safety Report 25880019 (Version 1)
Quarter: 2025Q4

REPORT INFORMATION
  Report Type: Spontaneous
  Country: CA (occurrence: CA)
  Receive Date: 20251004
  Receipt Date: 20251004
  Transmission Date: 20260117
  Serious: Yes (Other)
  Sender: ACCORD
  Company Number: None

PATIENT
  Age: 48 Year
  Sex: Male

DRUGS (3)
  1. AMLODIPINE [Suspect]
     Active Substance: AMLODIPINE BESYLATE
     Indication: Hypertension
     Dosage: 1 EVERY 1 DAY
     Route: 048
  2. METOPROLOL [Concomitant]
     Active Substance: METOPROLOL
  3. REACTINE [Concomitant]

REACTIONS (2)
  - Skin plaque [Recovering/Resolving]
  - Hypersensitivity [Recovering/Resolving]
